FAERS Safety Report 7745377-4 (Version None)
Quarter: 2011Q3

REPORT INFORMATION
  Report Type: 
  Country: None (occurrence: None)
  Receive Date: 20110913
  Receipt Date: 20110902
  Transmission Date: 20111222
  Serious: Yes (Hospitalization)
  Sender: FDA-Public Use
  Company Number: JP-JNJFOC-20110804599

PATIENT
  Sex: Female
  Weight: 48 kg

DRUGS (18)
  1. GOLIMUMAB [Suspect]
     Indication: RHEUMATOID ARTHRITIS
     Route: 058
     Dates: start: 20101224
  2. GOLIMUMAB [Suspect]
     Route: 058
     Dates: start: 20081128, end: 20101126
  3. GOLIMUMAB [Suspect]
     Route: 058
     Dates: start: 20110708, end: 20110708
  4. PRORENAL [Concomitant]
     Indication: INTERVERTEBRAL DISC PROTRUSION
     Route: 048
  5. NON-PYRINE COLD PREPARATION [Concomitant]
     Indication: OROPHARYNGEAL PAIN
     Route: 048
     Dates: start: 20110729, end: 20110731
  6. FOLIC ACID [Concomitant]
     Indication: DRUG INTERACTION
     Route: 048
  7. MUCOSTA [Concomitant]
     Indication: GASTRITIS PROPHYLAXIS
     Route: 048
     Dates: start: 20101029
  8. METHOTREXATE [Suspect]
     Route: 048
     Dates: start: 20110318
  9. METHOTREXATE [Suspect]
     Indication: RHEUMATOID ARTHRITIS
     Route: 048
     Dates: start: 20110610
  10. ISODINE GARGLE [Concomitant]
     Indication: PROPHYLAXIS
     Route: 049
  11. VOLTAREN [Concomitant]
     Indication: PYREXIA
     Route: 048
  12. VOLTAREN [Concomitant]
     Indication: INTERVERTEBRAL DISC PROTRUSION
     Route: 048
  13. METHOTREXATE [Suspect]
     Route: 048
     Dates: start: 20081128
  14. LOXONIN [Concomitant]
     Indication: RHEUMATOID ARTHRITIS
     Route: 003
     Dates: start: 20081031
  15. ETODOLAC [Concomitant]
     Indication: RHEUMATOID ARTHRITIS
     Route: 048
     Dates: start: 20101029
  16. NON-PYRINE COLD PREPARATION [Concomitant]
     Indication: PYREXIA
     Route: 048
     Dates: start: 20110729, end: 20110731
  17. CLARITHROMYCIN [Concomitant]
     Indication: PROPHYLAXIS
     Route: 048
  18. ALENDRONATE SODIUM [Concomitant]
     Indication: OSTEOPOROSIS
     Route: 048

REACTIONS (1)
  - PNEUMONIA [None]
